FAERS Safety Report 8725246 (Version 2)
Quarter: 2013Q3

REPORT INFORMATION
  Report Type: Report from Study
  Country: DE (occurrence: DE)
  Receive Date: 20120815
  Receipt Date: 20130827
  Transmission Date: 20140515
  Serious: Yes (Hospitalization, Other)
  Sender: FDA-Public Use
  Company Number: DE-ROCHE-1099051

PATIENT
  Age: 85 Year
  Sex: Female
  Weight: 72 kg

DRUGS (3)
  1. TOCILIZUMAB [Suspect]
     Indication: RHEUMATOID ARTHRITIS
     Route: 042
     Dates: start: 20120404
  2. TOCILIZUMAB [Suspect]
     Route: 042
     Dates: start: 20120927, end: 201209
  3. ADALIMUMAB [Concomitant]
     Route: 065
     Dates: start: 201210

REACTIONS (3)
  - Chest pain [Not Recovered/Not Resolved]
  - Hand fracture [Not Recovered/Not Resolved]
  - Fall [Unknown]
